FAERS Safety Report 5628165-4 (Version None)
Quarter: 2008Q1

REPORT INFORMATION
  Report Type: 
  Country: None (occurrence: None)
  Receive Date: 20080215
  Receipt Date: 20080211
  Transmission Date: 20080703
  Serious: Yes (Other)
  Sender: FDA-Public Use
  Company Number: DE-JNJFOC-20080202348

PATIENT
  Age: 84 Year
  Sex: Female

DRUGS (25)
  1. RISPERDAL [Suspect]
     Route: 048
  2. RISPERDAL [Suspect]
     Route: 048
  3. RISPERDAL [Suspect]
     Route: 048
  4. RISPERDAL [Suspect]
     Route: 048
  5. RISPERDAL [Suspect]
     Indication: DRUG USE FOR UNKNOWN INDICATION
     Route: 048
  6. ZYPREXA [Suspect]
     Route: 048
  7. ZYPREXA [Suspect]
     Route: 048
  8. ZYPREXA [Suspect]
     Route: 048
  9. ZYPREXA [Suspect]
     Route: 048
  10. ZYPREXA [Suspect]
     Route: 048
  11. ZYPREXA [Suspect]
     Route: 048
  12. ZYPREXA [Suspect]
     Route: 048
  13. ZYPREXA [Suspect]
     Route: 048
  14. ZYPREXA [Suspect]
     Route: 048
  15. ZYPREXA [Suspect]
     Indication: DRUG USE FOR UNKNOWN INDICATION
     Route: 048
  16. EXELON [Suspect]
     Indication: DRUG USE FOR UNKNOWN INDICATION
     Route: 062
  17. TAVOR [Suspect]
  18. TAVOR [Suspect]
  19. TAVOR [Suspect]
     Indication: DRUG USE FOR UNKNOWN INDICATION
  20. MELPERON [Suspect]
     Indication: DRUG USE FOR UNKNOWN INDICATION
     Route: 048
  21. TRIAMTEREN [Suspect]
     Route: 048
  22. TRIAMTEREN [Suspect]
     Indication: DRUG USE FOR UNKNOWN INDICATION
     Route: 048
  23. DEXIUM [Concomitant]
     Route: 048
  24. VENOSTASIN [Concomitant]
     Route: 048
  25. OVESTIN [Concomitant]
     Route: 048

REACTIONS (2)
  - FACIAL BONES FRACTURE [None]
  - FALL [None]
